FAERS Safety Report 6307553-7 (Version None)
Quarter: 2009Q3

REPORT INFORMATION
  Report Type: 
  Country: None (occurrence: None)
  Receive Date: 20090811
  Receipt Date: 20090729
  Transmission Date: 20100115
  Serious: Yes (Hospitalization)
  Sender: FDA-Public Use
  Company Number: 2009SP017243

PATIENT
  Age: 51 Year
  Sex: Male

DRUGS (2)
  1. PEG-INTRON [Suspect]
     Indication: HEPATITIS C
     Dates: start: 20090519
  2. RIBASPHERE [Suspect]
     Indication: HEPATITIS C
     Dates: start: 20090519

REACTIONS (4)
  - DIZZINESS [None]
  - HYPOTENSION [None]
  - THROMBOSIS [None]
  - WOUND INFECTION [None]
